FAERS Safety Report 23782556 (Version 2)
Quarter: 2024Q2

REPORT INFORMATION
  Report Type: Spontaneous
  Country: US (occurrence: US)
  Receive Date: 20240425
  Receipt Date: 20240604
  Transmission Date: 20240715
  Serious: No
  Sender: FDA-Public Use
  Company Number: US-GSKCCFUS-Case-01986750_AE-110299

PATIENT
  Sex: Female

DRUGS (1)
  1. ARNUITY ELLIPTA [Suspect]
     Active Substance: FLUTICASONE FUROATE
     Indication: Eosinophilic oesophagitis
     Dosage: 200 UG

REACTIONS (6)
  - Wrong technique in device usage process [Unknown]
  - Product dose omission issue [Unknown]
  - Drug ineffective [Unknown]
  - Product use in unapproved indication [Unknown]
  - Extra dose administered [Unknown]
  - Product complaint [Unknown]
